FAERS Safety Report 25533747 (Version 1)
Quarter: 2025Q3

REPORT INFORMATION
  Report Type: Spontaneous
  Country: GB (occurrence: None)
  Receive Date: 20250708
  Receipt Date: 20250708
  Transmission Date: 20251020
  Serious: Yes (Disabling)
  Sender: FDA-CTU
  Company Number: None

PATIENT
  Age: 50 Year
  Sex: Female
  Weight: 42 kg

DRUGS (10)
  1. EVENITY [Suspect]
     Active Substance: ROMOSOZUMAB-AQQG
     Indication: Osteoporosis
     Route: 058
     Dates: start: 20250327
  2. MIRTAZAPINE [Concomitant]
     Active Substance: MIRTAZAPINE
  3. Vitamin D capsules [Concomitant]
  4. LANSOPRAZOLE [Concomitant]
     Active Substance: LANSOPRAZOLE
  5. Fentanyl patch 25 micrograms [Concomitant]
  6. MIRABEGRON [Concomitant]
     Active Substance: MIRABEGRON
  7. ROPINIROLE [Concomitant]
     Active Substance: ROPINIROLE
  8. CODEINE [Concomitant]
     Active Substance: CODEINE
  9. IMODIUM [Concomitant]
     Active Substance: LOPERAMIDE HYDROCHLORIDE
  10. TPN IV [Concomitant]

REACTIONS (2)
  - Arthralgia [None]
  - Pain in extremity [None]

NARRATIVE: CASE EVENT DATE: 20250527
